FAERS Safety Report 20967447 (Version 1)
Quarter: 2022Q2

REPORT INFORMATION
  Report Type: Spontaneous
  Country: US (occurrence: US)
  Receive Date: 20220616
  Receipt Date: 20220616
  Transmission Date: 20220721
  Serious: No
  Sender: FDA-Public Use
  Company Number: US-ORGANON-O2206USA001138

PATIENT

DRUGS (2)
  1. PREGNYL [Suspect]
     Active Substance: CHORIOGONADOTROPIN ALFA
     Dosage: 1 MILLILITER EVERY 3 WEEK
  2. STERILE WATER [Suspect]
     Active Substance: WATER

REACTIONS (4)
  - Product temperature excursion issue [Unknown]
  - Product storage error [Unknown]
  - Circumstance or information capable of leading to medication error [Unknown]
  - Wrong technique in product usage process [Unknown]
